FAERS Safety Report 6140108-6 (Version None)
Quarter: 2009Q2

REPORT INFORMATION
  Report Type: 
  Country: None (occurrence: None)
  Receive Date: 20090401
  Receipt Date: 20090320
  Transmission Date: 20091009
  Serious: Yes (Other)
  Sender: FDA-Public Use
  Company Number: GR-PFIZER INC-2009185951

PATIENT

DRUGS (1)
  1. MEDROL [Suspect]
     Dosage: FREQUENCY: DAILYT,
     Route: 048
     Dates: start: 20090301

REACTIONS (2)
  - DYSPNOEA [None]
  - PANIC ATTACK [None]
